FAERS Safety Report 8177813-6 (Version None)
Quarter: 2012Q1

REPORT INFORMATION
  Report Type: 
  Country: None (occurrence: None)
  Receive Date: 20120301
  Receipt Date: 20120227
  Transmission Date: 20120608
  Serious: Yes (Other)
  Sender: FDA-Public Use
  Company Number: US-PFIZER INC-2012033570

PATIENT
  Sex: Male
  Weight: 91 kg

DRUGS (6)
  1. PRAVASTATIN [Concomitant]
     Dosage: 40 MG, 1X/DAY
  2. ATENOLOL [Concomitant]
     Indication: HYPERTENSION
     Dosage: 50 MG, 1X/DAY
  3. POTASSIUM [Concomitant]
     Dosage: UNK
  4. NORVASC [Suspect]
     Indication: HYPERTENSION
     Dosage: 10 MG, 1X/DAY
     Route: 048
  5. ACETYLSALICYLIC ACID [Concomitant]
     Dosage: UNK
  6. NORZAC [Concomitant]
     Dosage: UNK

REACTIONS (1)
  - HYPOACUSIS [None]
